FAERS Safety Report 8991788 (Version 1)
Quarter: 2012Q4

REPORT INFORMATION
  Report Type: Report from Study
  Country: US (occurrence: US)
  Receive Date: 20121231
  Receipt Date: 20121231
  Transmission Date: 20130627
  Serious: Yes (Hospitalization)
  Sender: FDA-Public Use
  Company Number: US-BRISTOL-MYERS SQUIBB COMPANY-14649719

PATIENT
  Age: 56 Year
  Sex: Male

DRUGS (11)
  1. DASATINIB [Suspect]
     Indication: PROSTATE CANCER
     Dosage: interrupted on 24May09
     Route: 048
     Dates: start: 20090217
  2. TAXOTERE [Suspect]
     Indication: PROSTATE CANCER
     Dosage: Started on 14Feb09 and interrupted on 05May09
     Route: 042
     Dates: start: 20090505, end: 20090505
  3. PREDNISONE [Suspect]
     Indication: PROSTATE CANCER
     Route: 048
     Dates: start: 20090217
  4. DEXAMETHASONE [Suspect]
     Indication: PREMEDICATION
     Dosage: interrupted on 07May09
     Route: 042
     Dates: start: 20090507, end: 20090507
  5. FLOMAX [Concomitant]
     Indication: POLLAKIURIA
     Route: 048
     Dates: start: 200802
  6. LEXAPRO [Concomitant]
     Indication: DEPRESSION
     Route: 048
     Dates: start: 200802
  7. LISINOPRIL [Concomitant]
     Indication: HYPERTENSION
     Route: 048
     Dates: start: 2007
  8. PRILOSEC [Concomitant]
     Indication: GASTROOESOPHAGEAL REFLUX DISEASE
     Dosage: Prilosec OTC
     Route: 048
     Dates: start: 2007
  9. SIMVASTATIN [Concomitant]
     Indication: HYPERCHOLESTEROLAEMIA
     Route: 048
     Dates: start: 2007
  10. AMBIEN [Concomitant]
     Indication: INSOMNIA
     Route: 048
     Dates: start: 200802
  11. TYLENOL [Concomitant]
     Indication: ARTHRALGIA
     Dosage: prn
     Route: 048
     Dates: start: 20090218

REACTIONS (2)
  - Pneumonia [Recovered/Resolved]
  - Dehydration [Recovered/Resolved]
